FAERS Safety Report 11448508 (Version 2)
Quarter: 2015Q3

REPORT INFORMATION
  Report Type: Spontaneous
  Country: US (occurrence: US)
  Receive Date: 20150902
  Receipt Date: 20150918
  Transmission Date: 20151125
  Serious: Yes (Hospitalization, Other)
  Sender: FDA-Public Use
  Company Number: US-GLAXOSMITHKLINE-US2015GSK123675

PATIENT
  Age: 57 Year
  Sex: Male

DRUGS (2)
  1. LAMICTAL XR [Suspect]
     Active Substance: LAMOTRIGINE
     Indication: MENINGIOMA
     Dosage: 100 MG, BID
     Dates: start: 2005
  2. LAMICTAL XR [Suspect]
     Active Substance: LAMOTRIGINE
     Indication: SEIZURE
     Dosage: 100 MG, U
     Dates: start: 2011

REACTIONS (6)
  - Brain neoplasm malignant [Not Recovered/Not Resolved]
  - Abasia [Not Recovered/Not Resolved]
  - Brain operation [Unknown]
  - Seizure [Unknown]
  - Surgery [Unknown]
  - Hospitalisation [Unknown]

NARRATIVE: CASE EVENT DATE: 2009
